FAERS Safety Report 9995280 (Version 1)
Quarter: 2014Q1

REPORT INFORMATION
  Report Type: Spontaneous
  Country: US (occurrence: None)
  Receive Date: 20140307
  Receipt Date: 20140307
  Transmission Date: 20141002
  Serious: Yes (Life-Threatening, Hospitalization, Disabling, Other)
  Sender: FDA-Public Use
  Company Number: None

PATIENT
  Sex: 0

DRUGS (2)
  1. SEROQUEL XR [Suspect]
  2. CYMBALTA [Suspect]

REACTIONS (6)
  - Trismus [None]
  - Dyskinesia [None]
  - Insomnia [None]
  - Rash [None]
  - Granuloma [None]
  - Drug ineffective [None]
